FAERS Safety Report 6243118-3 (Version None)
Quarter: 2009Q2

REPORT INFORMATION
  Report Type: 
  Country: None (occurrence: None)
  Receive Date: 20090622
  Receipt Date: 20090622
  Transmission Date: 20091009
  Serious: No
  Sender: FDA-Public Use
  Company Number: None

PATIENT
  Sex: Male
  Weight: 95.2554 kg

DRUGS (1)
  1. ZICAM [Suspect]
     Indication: NASOPHARYNGITIS
     Dosage: NASAL THREE OR FOUR TIMES
     Route: 045
     Dates: start: 20051227, end: 20060103

REACTIONS (5)
  - ANOSMIA [None]
  - BURNING SENSATION [None]
  - PARAESTHESIA [None]
  - PAROSMIA [None]
  - SINUS DISORDER [None]
